FAERS Safety Report 4726553-1 (Version None)
Quarter: 2005Q3

REPORT INFORMATION
  Report Type: 
  Country: None (occurrence: None)
  Receive Date: 20050726
  Receipt Date: 20050713
  Transmission Date: 20060218
  Serious: Yes (Death, Other)
  Sender: FDA-Public Use
  Company Number: 2005104204

PATIENT
  Age: 52 Year
  Sex: Male

DRUGS (4)
  1. PREDNISONE [Suspect]
     Indication: SYSTEMIC LUPUS ERYTHEMATOSUS
  2. METHYLPREDNISOLONE [Suspect]
     Indication: ASPERGILLOSIS
  3. METHYLPREDNISOLONE [Suspect]
     Indication: STAPHYLOCOCCAL SEPSIS
  4. CYCLOSPORINE [Suspect]

REACTIONS (8)
  - ASPERGILLOSIS [None]
  - BLOOD BETA-D-GLUCAN INCREASED [None]
  - BLOOD LACTATE DEHYDROGENASE INCREASED [None]
  - C-REACTIVE PROTEIN INCREASED [None]
  - CYTOMEGALOVIRUS ANTIGEN POSITIVE [None]
  - PNEUMOCYSTIS JIROVECI PNEUMONIA [None]
  - RED BLOOD CELL SEDIMENTATION RATE INCREASED [None]
  - STAPHYLOCOCCAL INFECTION [None]
